FAERS Safety Report 7705345-5 (Version None)
Quarter: 2011Q3

REPORT INFORMATION
  Report Type: 
  Country: None (occurrence: None)
  Receive Date: 20110818
  Receipt Date: 20110808
  Transmission Date: 20111222
  Serious: Yes (Other)
  Sender: FDA-Public Use
  Company Number: AUR-APL-2011-04656

PATIENT
  Age: 45 Year
  Sex: Male

DRUGS (7)
  1. XANAX [Suspect]
     Indication: DEPRESSION
     Dates: start: 20090301
  2. DIPHENHYDRAMINE HCL [Suspect]
     Indication: PRODUCT USED FOR UNKNOWN INDICATION
  3. CAFFEINE (CAFFEINE) [Suspect]
     Indication: PRODUCT USED FOR UNKNOWN INDICATION
  4. ACETONE (ACETONE) [Suspect]
     Indication: PRODUCT USED FOR UNKNOWN INDICATION
     Route: 048
  5. LEXAPRO [Suspect]
     Indication: DEPRESSION
     Dates: start: 20090301
  6. CITALOPRAM HYDROBROMIDE [Suspect]
     Indication: PRODUCT USED FOR UNKNOWN INDICATION
  7. ZOLPIDEM [Suspect]
     Indication: PRODUCT USED FOR UNKNOWN INDICATION
     Dosage: (10 MG), ORAL
     Route: 048

REACTIONS (6)
  - ANTIDEPRESSANT DRUG LEVEL ABOVE THERAPEUTIC [None]
  - IMPRISONMENT [None]
  - AMNESIA [None]
  - ANGER [None]
  - HOMICIDE [None]
  - AGITATION [None]
